FAERS Safety Report 8554921-9 (Version None)
Quarter: 2012Q3

REPORT INFORMATION
  Report Type: 
  Country: None (occurrence: None)
  Receive Date: 20120725
  Receipt Date: 20120725
  Transmission Date: 20120928
  Serious: No
  Sender: FDA-Public Use
  Company Number: None

PATIENT
  Age: 27 Year
  Sex: Male
  Weight: 39.4629 kg

DRUGS (1)
  1. PREVACID [Suspect]
     Indication: GASTROOESOPHAGEAL REFLUX DISEASE
     Dosage: #60 ONCE PO BID
     Route: 048

REACTIONS (3)
  - NO THERAPEUTIC RESPONSE [None]
  - DROOLING [None]
  - INCORRECT DOSE ADMINISTERED [None]
